FAERS Safety Report 9188176 (Version 2)
Quarter: 2012Q4

REPORT INFORMATION
  Report Type: 
  Country: US (occurrence: US)
  Receive Date: 20121126
  Receipt Date: 20121128
  Transmission Date: 20130627
  Serious: Yes (Death, Hospitalization, Other)
  Sender: FDA-Public Use
  Company Number: US-RB-046964-12

PATIENT
  Age: 28 Year
  Sex: Male

DRUGS (1)
  1. SUBOXONE [Suspect]
     Indication: DRUG DEPENDENCE
     Dosage: Dosing details unknown
     Route: 065

REACTIONS (3)
  - Completed suicide [Fatal]
  - Suicidal ideation [Fatal]
  - Drug withdrawal syndrome [Unknown]
